FAERS Safety Report 7551644-X (Version None)
Quarter: 2011Q2

REPORT INFORMATION
  Report Type: 
  Country: None (occurrence: None)
  Receive Date: 20110616
  Receipt Date: 20110603
  Transmission Date: 20111010
  Serious: Yes (Other)
  Sender: FDA-Public Use
  Company Number: US-BRACCO-006312

PATIENT
  Sex: Male

DRUGS (2)
  1. CARDIOGEN-82 [Suspect]
     Indication: ANGIOGRAM
     Route: 042
     Dates: start: 20110314, end: 20110314
  2. CARDIOGEN-82 [Suspect]
     Indication: POSITRON EMISSION TOMOGRAM
     Route: 042
     Dates: start: 20110314, end: 20110314

REACTIONS (1)
  - RADIATION EXPOSURE [None]
